FAERS Safety Report 6858317-7 (Version None)
Quarter: 2010Q3

REPORT INFORMATION
  Report Type: 
  Country: None (occurrence: None)
  Receive Date: 20100719
  Receipt Date: 20090313
  Transmission Date: 20110219
  Serious: Yes (Other)
  Sender: FDA-Public Use
  Company Number: US-PFIZER INC-2008012175

PATIENT
  Sex: Female
  Weight: 77 kg

DRUGS (17)
  1. CHANTIX [Interacting]
     Indication: SMOKING CESSATION THERAPY
     Dosage: UNK
     Dates: start: 20080121
  2. ALBUTEROL [Interacting]
     Dosage: UNK
  3. ADVAIR DISKUS 100/50 [Interacting]
  4. LEVAQUIN [Suspect]
     Indication: BRONCHITIS
  5. ASACOL [Concomitant]
  6. MS CONTIN [Concomitant]
  7. PREMPHASE 14/14 [Concomitant]
  8. LEXAPRO [Concomitant]
  9. DILAUDID [Concomitant]
  10. SOMA [Concomitant]
  11. XANAX [Concomitant]
  12. ZYRTEC [Concomitant]
  13. VITAMIN B [Concomitant]
  14. ZOLPIDEM TARTRATE [Concomitant]
  15. ALL OTHER THERAPEUTIC PRODUCTS [Concomitant]
  16. FIBRE, DIETARY [Concomitant]
  17. OTHER ANTIDIARRHOEALS [Concomitant]

REACTIONS (15)
  - ABNORMAL DREAMS [None]
  - ANXIETY [None]
  - BALANCE DISORDER [None]
  - BRONCHITIS [None]
  - DEPRESSION [None]
  - DRUG INTERACTION [None]
  - FALL [None]
  - FEELING ABNORMAL [None]
  - FLATULENCE [None]
  - GASTROINTESTINAL DISORDER [None]
  - HYPERHIDROSIS [None]
  - INSOMNIA [None]
  - MENOPAUSE [None]
  - NAUSEA [None]
  - WHEEZING [None]
